FAERS Safety Report 25528769 (Version 1)
Quarter: 2025Q3

REPORT INFORMATION
  Report Type: Report from Study
  Country: US (occurrence: US)
  Receive Date: 20250708
  Receipt Date: 20250708
  Transmission Date: 20251021
  Serious: Yes (Other)
  Sender: ROCHE
  Company Number: US-ROCHE-10000323156

PATIENT
  Sex: Female

DRUGS (2)
  1. RITUXAN [Suspect]
     Active Substance: RITUXIMAB
     Indication: Lupus nephritis
     Route: 065
  2. CELLCEPT [Suspect]
     Active Substance: MYCOPHENOLATE MOFETIL
     Indication: Lupus nephritis
     Route: 065

REACTIONS (7)
  - Off label use [Unknown]
  - Off label use [Unknown]
  - Lupus nephritis [Unknown]
  - Fatigue [Unknown]
  - Arthralgia [Unknown]
  - Photosensitivity reaction [Unknown]
  - Renal disorder [Unknown]
